FAERS Safety Report 9051860 (Version 1)
Quarter: 2013Q1

REPORT INFORMATION
  Report Type: Spontaneous
  Country: US (occurrence: None)
  Receive Date: 20130130
  Receipt Date: 20130130
  Transmission Date: 20140127
  Serious: Yes (Hospitalization)
  Sender: FDA-Public Use
  Company Number: None

PATIENT
  Age: 71 Year
  Sex: Male
  Weight: 103 kg

DRUGS (20)
  1. PRADAXA [Suspect]
     Indication: ATRIAL FIBRILLATION
     Dosage: CHRONIC
     Route: 048
  2. PLAVIX [Suspect]
     Indication: STENT PLACEMENT
     Dosage: RECENT
     Route: 048
  3. BYETTA [Concomitant]
  4. LANTUS [Concomitant]
  5. BUMEX [Concomitant]
  6. METOPROLOL [Concomitant]
  7. HUMALOG [Concomitant]
  8. KCL [Concomitant]
  9. MAG OX [Concomitant]
  10. FERROUS SULFATE [Concomitant]
  11. TAMSULOSIN [Concomitant]
  12. PRAVASTATIN [Concomitant]
  13. FOSINOPRIL [Concomitant]
  14. PERCOCET [Concomitant]
  15. METANX [Concomitant]
  16. DECADRON [Concomitant]
  17. VIT B [Concomitant]
  18. VIT C [Concomitant]
  19. CA [Concomitant]
  20. VIT D [Concomitant]

REACTIONS (3)
  - Hypotension [None]
  - Upper gastrointestinal haemorrhage [None]
  - Anastomotic ulcer [None]
